FAERS Safety Report 8724885 (Version 2)
Quarter: 2015Q2

REPORT INFORMATION
  Report Type: Report from Study
  Country: US (occurrence: US)
  Receive Date: 20120815
  Receipt Date: 20150626
  Transmission Date: 20150821
  Serious: Yes (Other)
  Sender: FDA-Public Use
  Company Number: US-ROCHE-1099006

PATIENT
  Age: 64 Year
  Sex: Female

DRUGS (13)
  1. ACTIVASE [Suspect]
     Active Substance: ALTEPLASE
     Indication: ACUTE MYOCARDIAL INFARCTION
     Route: 065
  2. LIDOCAINE. [Concomitant]
     Active Substance: LIDOCAINE
     Route: 042
  3. INSULIN [Concomitant]
     Active Substance: INSULIN NOS
     Dosage: 30UNITS Q A.M AND 8 UNITS Q P.M
     Route: 065
  4. FUROSEMIDE. [Concomitant]
     Active Substance: FUROSEMIDE
  5. LOPRESSOR [Concomitant]
     Active Substance: METOPROLOL TARTRATE
     Route: 048
  6. NITROGLYCERIN. [Concomitant]
     Active Substance: NITROGLYCERIN
     Dosage: AS REQUIRED
     Route: 060
  7. COUMADIN [Concomitant]
     Active Substance: WARFARIN SODIUM
     Route: 048
  8. ECOTRIN [Concomitant]
     Active Substance: ASPIRIN
     Route: 048
  9. LIDOCAINE. [Concomitant]
     Active Substance: LIDOCAINE
     Dosage: 2 MG PER MIN
     Route: 041
  10. NITROGLYCERIN. [Concomitant]
     Active Substance: NITROGLYCERIN
     Route: 060
  11. LOPRESSOR [Concomitant]
     Active Substance: METOPROLOL TARTRATE
     Dosage: 5 MG 3 TIMES AT 5 MIN INTERVALS
     Route: 048
  12. HEPARIN [Concomitant]
     Active Substance: HEPARIN SODIUM
     Route: 041
  13. CAPTOPRIL. [Concomitant]
     Active Substance: CAPTOPRIL
     Route: 048

REACTIONS (10)
  - Cerebral atrophy [Unknown]
  - Reperfusion arrhythmia [Unknown]
  - Cardiac failure congestive [Unknown]
  - Vomiting [Unknown]
  - Lethargy [Unknown]
  - Dysarthria [Unknown]
  - Motor dysfunction [Unknown]
  - Cerebral hypoperfusion [Unknown]
  - Ventricular hypokinesia [Unknown]
  - Weight increased [Unknown]
